FAERS Safety Report 12285810 (Version 5)
Quarter: 2018Q1

REPORT INFORMATION
  Report Type: Spontaneous
  Country: TW (occurrence: TW)
  Receive Date: 20160420
  Receipt Date: 20180228
  Transmission Date: 20180508
  Serious: Yes (Hospitalization, Other)
  Sender: FDA-Public Use
  Company Number: TW-ALEXION PHARMACEUTICALS INC.-A201602661

PATIENT
  Age: 26 Year
  Sex: Male

DRUGS (8)
  1. SOLIRIS [Suspect]
     Active Substance: ECULIZUMAB
     Dosage: 600 MG, QW
     Route: 042
     Dates: start: 20150605, end: 20150626
  2. OXETHAZAINE [Concomitant]
     Active Substance: OXETHAZAINE
     Indication: PRODUCT USED FOR UNKNOWN INDICATION
     Dosage: UNK
     Route: 065
     Dates: start: 20160508, end: 20160510
  3. DEXTROSE. [Concomitant]
     Active Substance: DEXTROSE
     Indication: PRODUCT USED FOR UNKNOWN INDICATION
     Dosage: UNK
     Route: 065
     Dates: start: 20160331, end: 20160404
  4. DEXTROSE. [Concomitant]
     Active Substance: DEXTROSE
     Dosage: UNK
     Route: 065
     Dates: start: 20160503
  5. SOLIRIS [Suspect]
     Active Substance: ECULIZUMAB
     Dosage: 900 MG, Q2W
     Route: 042
     Dates: start: 20150704
  6. ELECTROLYTE                        /06009701/ [Concomitant]
     Indication: PRODUCT USED FOR UNKNOWN INDICATION
     Dosage: UNK
     Route: 065
     Dates: start: 20160331, end: 20160404
  7. ELECTROLYTE                        /06009701/ [Concomitant]
     Dosage: UNK
     Route: 065
     Dates: start: 20160503
  8. SOLIRIS [Suspect]
     Active Substance: ECULIZUMAB
     Indication: PAROXYSMAL NOCTURNAL HAEMOGLOBINURIA
     Dosage: UNK, Q2W
     Route: 065
     Dates: start: 201203, end: 201305

REACTIONS (23)
  - Hypokalaemia [Recovering/Resolving]
  - Inappropriate schedule of drug administration [Unknown]
  - Vomiting [Unknown]
  - Diarrhoea [Unknown]
  - Cough [Unknown]
  - Platelet count decreased [Recovered/Resolved]
  - Marrow hyperplasia [Unknown]
  - Abdominal pain upper [Unknown]
  - Renal disorder [Unknown]
  - Nasal obstruction [Unknown]
  - Papillitis [Unknown]
  - Kidney enlargement [Unknown]
  - Nausea [Unknown]
  - Rhinorrhoea [Unknown]
  - Jaundice cholestatic [Recovering/Resolving]
  - Pancreatitis relapsing [Recovered/Resolved]
  - Hyperbilirubinaemia [Recovered/Resolved]
  - Cholelithiasis [Recovering/Resolving]
  - Epigastric discomfort [Unknown]
  - Decreased appetite [Unknown]
  - Obstructive pancreatitis [Recovered/Resolved]
  - Leukopenia [Unknown]
  - Splenomegaly [Unknown]

NARRATIVE: CASE EVENT DATE: 20140515
